FAERS Safety Report 21587169 (Version 1)
Quarter: 2022Q4

REPORT INFORMATION
  Report Type: Spontaneous
  Country: US (occurrence: US)
  Receive Date: 20221114
  Receipt Date: 20221114
  Transmission Date: 20230112
  Serious: Yes (Other)
  Sender: FDA-Public Use
  Company Number: US-BRISTOL-MYERS SQUIBB COMPANY-2022-134111

PATIENT
  Age: 62 Year
  Sex: Male

DRUGS (3)
  1. ONUREG [Suspect]
     Active Substance: AZACITIDINE
     Indication: Acute myeloid leukaemia
     Dosage: DAYS 1-14 OF EACH 28 DAY TREATEMENT, POST HSCT MAINTENANCE
     Route: 065
     Dates: start: 202112
  2. ONUREG [Suspect]
     Active Substance: AZACITIDINE
     Dosage: 200 MG QD FOR 7 DAYS
     Route: 065
  3. VENETOCLAX [Concomitant]
     Active Substance: VENETOCLAX
     Indication: Acute myeloid leukaemia
     Dosage: FOR 7 DAYS OF EACH28-DAY TREATMENT CYCLE
     Route: 065
     Dates: start: 202112

REACTIONS (2)
  - Cytopenia [Recovering/Resolving]
  - Vomiting [Unknown]
